FAERS Safety Report 18085750 (Version 1)
Quarter: 2020Q3

REPORT INFORMATION
  Report Type: Spontaneous
  Country: US (occurrence: US)
  Receive Date: 20200728
  Receipt Date: 20200728
  Transmission Date: 20201103
  Serious: No
  Sender: FDA-Public Use
  Company Number: US-PERRIGO-20US007176

PATIENT
  Age: 45 Year
  Sex: Male
  Weight: 108.84 kg

DRUGS (5)
  1. PREDNISONE. [Concomitant]
     Active Substance: PREDNISONE
     Indication: PARANASAL SINUS DISCOMFORT
     Dosage: UNK
     Route: 065
     Dates: start: 202002, end: 202003
  2. ALBUTEROL                          /00139501/ [Concomitant]
     Active Substance: ALBUTEROL
     Indication: ASTHMA
     Dosage: UNKNOWN, PRN
     Route: 055
  3. AMOXICILLIN. [Concomitant]
     Active Substance: AMOXICILLIN
     Indication: PARANASAL SINUS DISCOMFORT
     Dosage: UNK
     Route: 065
     Dates: start: 202002, end: 202003
  4. MINOXIDIL. [Suspect]
     Active Substance: MINOXIDIL
     Indication: ALOPECIA
     Dosage: 0.5 ML OR LESS, QD
     Route: 061
     Dates: start: 20200319, end: 20200504
  5. VENTOLIN [Concomitant]
     Active Substance: ALBUTEROL SULFATE
     Indication: ASTHMA
     Dosage: , PRNUNK
     Route: 065

REACTIONS (4)
  - Application site pruritus [Not Recovered/Not Resolved]
  - Off label use [Recovered/Resolved]
  - Hair injury [Unknown]
  - Alopecia [Recovered/Resolved]

NARRATIVE: CASE EVENT DATE: 20200319
